FAERS Safety Report 21043726 (Version 3)
Quarter: 2022Q3

REPORT INFORMATION
  Report Type: Report from Study
  Country: CR (occurrence: CR)
  Receive Date: 20220705
  Receipt Date: 20220910
  Transmission Date: 20221027
  Serious: Yes (Life-Threatening)
  Sender: FDA-Public Use
  Company Number: CR-NOVARTISPH-NVSC2022CR152470

PATIENT
  Age: 57 Year
  Sex: Female

DRUGS (4)
  1. KISQALI [Suspect]
     Active Substance: RIBOCICLIB
     Indication: Breast cancer
     Dosage: 600 MG, QD
     Route: 048
     Dates: start: 2021
  2. KISQALI [Suspect]
     Active Substance: RIBOCICLIB
     Dosage: 600 MG, QD
     Route: 048
     Dates: start: 20220210
  3. KISQALI [Suspect]
     Active Substance: RIBOCICLIB
     Dosage: 600 MG, QD
     Route: 048
     Dates: start: 20220420
  4. ANASTROZOLE [Suspect]
     Active Substance: ANASTROZOLE
     Indication: Product used for unknown indication
     Dosage: UNK
     Route: 065

REACTIONS (10)
  - White blood cell count decreased [Unknown]
  - Depressed mood [Unknown]
  - Asthenia [Unknown]
  - Vomiting [Unknown]
  - Muscle spasms [Unknown]
  - Influenza [Unknown]
  - Oropharyngeal discomfort [Unknown]
  - Product supply issue [Unknown]
  - Inappropriate schedule of product administration [Unknown]
  - Fatigue [Unknown]

NARRATIVE: CASE EVENT DATE: 20220701
